FAERS Safety Report 8676090 (Version 4)
Quarter: 2012Q4

REPORT INFORMATION
  Report Type: Report from Study
  Country: JP (occurrence: JP)
  Receive Date: 20120720
  Receipt Date: 20120925
  Transmission Date: 20130627
  Serious: Yes (Hospitalization)
  Sender: FDA-Public Use
  Company Number: JP-CELGENEUS-087-21660-12071456

PATIENT
  Age: 64 Year
  Sex: Female
  Weight: 44 kg

DRUGS (11)
  1. ABRAXANE [Suspect]
     Indication: GASTRIC CANCER
     Dosage: 293 Milligram
     Route: 041
     Dates: start: 20120619, end: 20120619
  2. TS-1 [Suspect]
     Indication: GASTRIC CANCER
     Dosage: 100 Milligram
     Route: 048
     Dates: start: 20120619, end: 20120702
  3. RINDERON-VG [Concomitant]
     Indication: RASH MACULO-PAPULAR
     Route: 065
     Dates: start: 20120626
  4. XYLOCAINE [Concomitant]
     Indication: MUCOSITIS ORAL
     Dosage: 200 milliliter
     Route: 065
     Dates: start: 20120703
  5. AZ [Concomitant]
     Indication: MUCOSITIS ORAL
     Dosage: 200 milliliter
     Route: 065
     Dates: start: 20120703
  6. PROPETO [Concomitant]
     Indication: RASH MACULO-PAPULAR
     Route: 065
     Dates: start: 20120704
  7. ISOTONIC SODIUM CHLORIDE [Concomitant]
     Indication: MUCOSITIS
     Route: 048
     Dates: start: 20120710
  8. SOSEGON [Concomitant]
     Indication: ABDOMINAL PAIN
     Route: 041
     Dates: start: 20120708
  9. ATARAX-P [Concomitant]
     Indication: ABDOMINAL PAIN
     Route: 041
     Dates: start: 20120708
  10. ROPION [Concomitant]
     Indication: ABDOMINAL PAIN
     Dosage: 50 Milligram
     Route: 041
     Dates: start: 20120707, end: 20120707
  11. PRIMPERAN [Concomitant]
     Indication: NAUSEA
     Route: 041
     Dates: start: 20120705

REACTIONS (5)
  - Hyperkalaemia [Recovered/Resolved]
  - Decreased appetite [Recovered/Resolved]
  - Fatigue [Recovered/Resolved]
  - Enteritis infectious [Recovered/Resolved]
  - Sepsis [Recovering/Resolving]
